FAERS Safety Report 12642515 (Version 1)
Quarter: 2016Q3

REPORT INFORMATION
  Report Type: Spontaneous
  Country: DE (occurrence: DE)
  Receive Date: 20160810
  Receipt Date: 20160810
  Transmission Date: 20161109
  Serious: Yes (Death, Life-Threatening)
  Sender: FDA-Public Use
  Company Number: PHHY2016DE096562

PATIENT
  Age: 73 Year
  Sex: Male
  Weight: 85 kg

DRUGS (5)
  1. TORASEMID [Concomitant]
     Active Substance: TORSEMIDE
     Indication: OEDEMA PERIPHERAL
     Route: 065
  2. AQUAPHOR [Concomitant]
     Active Substance: PETROLATUM
     Indication: PLEURAL EFFUSION
  3. ENTRESTO [Suspect]
     Active Substance: SACUBITRIL\VALSARTAN
     Indication: CARDIAC FAILURE
     Dosage: 0.5 DF, BID
     Route: 048
     Dates: start: 20160618, end: 20160621
  4. AQUAPHOR [Concomitant]
     Active Substance: PETROLATUM
     Indication: ASCITES
     Route: 065
  5. ELIQUIS [Concomitant]
     Active Substance: APIXABAN
     Indication: ATRIAL FIBRILLATION
     Dosage: 10 MG, UNK
     Route: 048
     Dates: start: 20160113

REACTIONS (3)
  - Cardiac failure [Fatal]
  - Hypotension [Recovered/Resolved]
  - Prescribed underdose [Unknown]

NARRATIVE: CASE EVENT DATE: 20160621
